FAERS Safety Report 8756132 (Version 1)
Quarter: 2012Q4

REPORT INFORMATION
  Report Type: 
  Country: US (occurrence: US)
  Receive Date: 20120828
  Receipt Date: 20120828
  Transmission Date: 20130627
  Serious: No
  Sender: FDA-Public Use
  Company Number: US-PFIZER INC-2012207063

PATIENT
  Age: 28 Year
  Sex: Female

DRUGS (1)
  1. PROCARDIA [Suspect]
     Dosage: UNK

REACTIONS (5)
  - Oedema peripheral [Unknown]
  - Fluid retention [Unknown]
  - Flushing [Unknown]
  - Erythema [Unknown]
  - Feeling hot [Unknown]
